FAERS Safety Report 6404105-5 (Version None)
Quarter: 2009Q4

REPORT INFORMATION
  Report Type: 
  Country: None (occurrence: None)
  Receive Date: 20091016
  Receipt Date: 20090909
  Transmission Date: 20100525
  Serious: No
  Sender: FDA-Public Use
  Company Number: US-ALEXION-A200900741

PATIENT
  Sex: Female

DRUGS (11)
  1. SOLIRIS [Suspect]
     Indication: PAROXYSMAL NOCTURNAL HAEMOGLOBINURIA
     Dosage: UNK, Q2W
     Route: 042
     Dates: start: 20070523
  2. SOLIRIS [Suspect]
     Dosage: 900 MG, UNK
  3. MAGNESIUM OXIDE [Concomitant]
     Dosage: 400 MG, TID
  4. FOLIC ACID [Concomitant]
     Dosage: 1 MG, QD
  5. CALCIUM [Concomitant]
     Dosage: 500 MG, BID
  6. POTASSIUM PHOSPHATES [Concomitant]
     Dosage: 20 MEQ, TID
  7. ZYRTEC [Concomitant]
     Dosage: UNK
  8. ZICAM                              /01792001/ [Concomitant]
     Dosage: SPRAY, PRN, QD
     Route: 045
  9. ILLEGIBLE [Concomitant]
     Dosage: 10 MEQ, QD
  10. EXJADE [Concomitant]
     Dosage: 125 MG, QD
  11. MUCINEX [Concomitant]
     Indication: SINUS DISORDER
     Dosage: 3-4 X DAILY

REACTIONS (1)
  - HAEMOLYSIS [None]
